FAERS Safety Report 24250413 (Version 1)
Quarter: 2024Q3

REPORT INFORMATION
  Report Type: Other
  Country: TN (occurrence: TN)
  Receive Date: 20240826
  Receipt Date: 20240826
  Transmission Date: 20241016
  Serious: Yes (Hospitalization, Other)
  Sender: MARKSANS
  Company Number: TN-Marksans Pharma Limited-2160867

PATIENT
  Age: 64 Year
  Sex: Female

DRUGS (2)
  1. METFORMIN HYDROCHLORIDE [Suspect]
     Active Substance: METFORMIN HYDROCHLORIDE
     Indication: Type 2 diabetes mellitus
     Route: 065
  2. INSULIN NOS [Concomitant]
     Active Substance: INSULIN NOS
     Route: 065

REACTIONS (3)
  - Dementia [Recovered/Resolved]
  - Vitamin B12 deficiency [Unknown]
  - Generalised onset non-motor seizure [Recovered/Resolved]
